FAERS Safety Report 4549966-X (Version None)
Quarter: 2005Q1

REPORT INFORMATION
  Report Type: 
  Country: None (occurrence: None)
  Receive Date: 20050110
  Receipt Date: 20041231
  Transmission Date: 20050727
  Serious: Yes (Hospitalization)
  Sender: FDA-Public Use
  Company Number: K200401986

PATIENT
  Age: 16 Month
  Sex: Male

DRUGS (1)
  1. LEVOXYL [Suspect]
     Indication: HYPOTHYROIDISM
     Dosage: 25 MCG, QD, ORAL
     Route: 048
     Dates: start: 20041201, end: 20041201

REACTIONS (4)
  - CONVULSION [None]
  - DEHYDRATION [None]
  - DIARRHOEA [None]
  - PYREXIA [None]
